FAERS Safety Report 8367616-1 (Version None)
Quarter: 2012Q2

REPORT INFORMATION
  Report Type: 
  Country: None (occurrence: None)
  Receive Date: 20120517
  Receipt Date: 20120509
  Transmission Date: 20120825
  Serious: Yes (Other)
  Sender: FDA-Public Use
  Company Number: US-MYLANLABS-2012S1009537

PATIENT
  Age: 31 Year
  Sex: Female

DRUGS (7)
  1. SERTRALINE HYDROCHLORIDE [Concomitant]
     Indication: DEPRESSION
     Route: 048
  2. CLONAZEPAM [Suspect]
     Route: 048
     Dates: start: 20120503, end: 20120505
  3. CLORAZEPATE DIPOTASSIUM [Suspect]
     Indication: PANIC ATTACK
     Route: 048
     Dates: start: 20120427, end: 20120502
  4. CLONAZEPAM [Suspect]
     Route: 048
     Dates: start: 20120503, end: 20120505
  5. CLORAZEPATE DIPOTASSIUM [Suspect]
     Indication: ANXIETY
     Route: 048
     Dates: start: 20120427, end: 20120502
  6. CLONAZEPAM [Suspect]
     Indication: PANIC ATTACK
     Route: 048
     Dates: start: 20120503, end: 20120505
  7. CLONAZEPAM [Suspect]
     Indication: ANXIETY
     Route: 048
     Dates: start: 20120503, end: 20120505

REACTIONS (7)
  - SUICIDAL IDEATION [None]
  - DECREASED APPETITE [None]
  - ANXIETY [None]
  - PANIC ATTACK [None]
  - WEIGHT DECREASED [None]
  - DRUG WITHDRAWAL SYNDROME [None]
  - DRUG INEFFECTIVE [None]
